FAERS Safety Report 8446406-5 (Version None)
Quarter: 2012Q2

REPORT INFORMATION
  Report Type: 
  Country: None (occurrence: None)
  Receive Date: 20120618
  Receipt Date: 20120223
  Transmission Date: 20120825
  Serious: No
  Sender: FDA-Public Use
  Company Number: US-TEVA-324170USA

PATIENT
  Sex: Male
  Weight: 97.61 kg

DRUGS (2)
  1. ACTIQ [Suspect]
     Indication: NEURALGIA
     Route: 002
     Dates: start: 20080101
  2. FENTANYL-100 [Concomitant]
     Dosage: 25-100 MCG/HR
     Route: 062
     Dates: start: 20100101

REACTIONS (3)
  - DRUG PRESCRIBING ERROR [None]
  - OFF LABEL USE [None]
  - DRUG INEFFECTIVE [None]
